FAERS Safety Report 11348338 (Version 1)
Quarter: 2015Q3

REPORT INFORMATION
  Report Type: Spontaneous
  Country: BR (occurrence: BR)
  Receive Date: 20150806
  Receipt Date: 20150806
  Transmission Date: 20151125
  Serious: Yes (Hospitalization, Other)
  Sender: FDA-Public Use
  Company Number: BR-PFIZER INC-2015257987

PATIENT
  Age: 35 Year
  Sex: Male

DRUGS (1)
  1. UPLYSO [Suspect]
     Active Substance: TALIGLUCERASE ALFA
     Indication: GAUCHER^S DISEASE TYPE I
     Dosage: 60 IU/KG, UNK
     Dates: start: 2010

REACTIONS (2)
  - Hepatic fibrosis [Unknown]
  - Hepatorenal syndrome [Unknown]
